FAERS Safety Report 4613665-6 (Version None)
Quarter: 2005Q1

REPORT INFORMATION
  Report Type: 
  Country: None (occurrence: None)
  Receive Date: 20050318
  Receipt Date: 20050318
  Transmission Date: 20050727
  Serious: Yes (Other)
  Sender: FDA-Public Use
  Company Number: None

PATIENT
  Sex: Female
  Weight: 55.3388 kg

DRUGS (1)
  1. VANCOMYCIN [Suspect]
     Indication: LOCALISED INFECTION
     Dosage: 500 MG IV  248 HR
     Route: 042
     Dates: start: 20050302, end: 20050316

REACTIONS (1)
  - RASH GENERALISED [None]
